FAERS Safety Report 11981118 (Version 2)
Quarter: 2016Q1

REPORT INFORMATION
  Report Type: Spontaneous
  Country: SN (occurrence: SN)
  Receive Date: 20160129
  Receipt Date: 20160209
  Transmission Date: 20160526
  Serious: Yes (Death, Hospitalization, Other)
  Sender: FDA-Public Use
  Company Number: PHHY2016SN009287

PATIENT
  Age: 56 Year
  Sex: Female

DRUGS (5)
  1. URSODEOXYCHOLIC ACID [Suspect]
     Active Substance: URSODIOL
     Indication: BILIARY CIRRHOSIS PRIMARY
     Route: 065
  2. PREDNISONE. [Suspect]
     Active Substance: PREDNISONE
     Indication: BILIARY CIRRHOSIS PRIMARY
     Dosage: 10 MG, QD
     Route: 065
  3. URSODEOXYCHOLIC ACID [Suspect]
     Active Substance: URSODIOL
     Dosage: 1200 MG, QD
     Route: 065
  4. PROPRANOLOL [Suspect]
     Active Substance: PROPRANOLOL\PROPRANOLOL HYDROCHLORIDE
     Indication: PROPHYLAXIS
     Dosage: 160 MG, QD
     Route: 065
  5. AZATHIOPRINE. [Suspect]
     Active Substance: AZATHIOPRINE
     Indication: BILIARY CIRRHOSIS PRIMARY
     Dosage: 50 MG, QD
     Route: 065

REACTIONS (6)
  - Hepatic failure [Fatal]
  - Pancytopenia [Recovered/Resolved]
  - Drug resistance [Unknown]
  - Haematemesis [Unknown]
  - Retroperitoneal haematoma [Recovered/Resolved]
  - Varices oesophageal [Unknown]
